FAERS Safety Report 26150402 (Version 1)
Quarter: 2025Q4

REPORT INFORMATION
  Report Type: Spontaneous
  Country: US (occurrence: US)
  Receive Date: 20251212
  Receipt Date: 20251212
  Transmission Date: 20260118
  Serious: No
  Sender: AMGEN
  Company Number: US-AMGEN-USASP2025242226

PATIENT

DRUGS (2)
  1. REPATHA [Suspect]
     Active Substance: EVOLOCUMAB
     Indication: Product used for unknown indication
     Dosage: UNK
     Route: 065
  2. ZEPBOUND [Concomitant]
     Active Substance: TIRZEPATIDE
     Dosage: UNK
     Route: 065

REACTIONS (1)
  - Anxiety [Recovering/Resolving]
